FAERS Safety Report 24361609 (Version 1)
Quarter: 2024Q3

REPORT INFORMATION
  Report Type: Other
  Country: US (occurrence: US)
  Receive Date: 20240925
  Receipt Date: 20240925
  Transmission Date: 20241017
  Serious: Yes (Death)
  Sender: ORBION PHARMACEUTICALS
  Company Number: US-OrBion Pharmaceuticals Private Limited-2162010

PATIENT
  Age: 61 Year

DRUGS (4)
  1. LEVETIRACETAM [Suspect]
     Active Substance: LEVETIRACETAM
     Indication: Overdose
  2. DONEPEZIL [Suspect]
     Active Substance: DONEPEZIL\DONEPEZIL HYDROCHLORIDE
  3. TRAZODONE [Suspect]
     Active Substance: TRAZODONE HYDROCHLORIDE
  4. GABAPENTIN [Suspect]
     Active Substance: GABAPENTIN

REACTIONS (3)
  - Overdose [Fatal]
  - Toxicity to various agents [Fatal]
  - Anticonvulsant drug level above therapeutic [Fatal]
